FAERS Safety Report 5602616-3 (Version None)
Quarter: 2008Q1

REPORT INFORMATION
  Report Type: 
  Country: None (occurrence: None)
  Receive Date: 20080125
  Receipt Date: 20080110
  Transmission Date: 20080703
  Serious: Yes (Disabling)
  Sender: FDA-Public Use
  Company Number: KR-AVENTIS-200810422GDDC

PATIENT
  Age: 63 Year
  Sex: Female

DRUGS (2)
  1. GLIMEPIRIDE/METFORMIN (AMARYL M) [Suspect]
     Indication: DIABETES MELLITUS
     Route: 048
     Dates: start: 20071101, end: 20080109
  2. GLIMEPIRIDE/METFORMIN (AMARYL M) [Suspect]
     Route: 048
     Dates: start: 20080109

REACTIONS (9)
  - DIZZINESS [None]
  - EYE PAIN [None]
  - FATIGUE [None]
  - HYPOGLYCAEMIA [None]
  - INCORRECT DOSE ADMINISTERED [None]
  - MEDICATION ERROR [None]
  - RETINAL DISORDER [None]
  - VISION BLURRED [None]
  - VISUAL ACUITY REDUCED [None]
